FAERS Safety Report 5217554-8 (Version None)
Quarter: 2007Q1

REPORT INFORMATION
  Report Type: 
  Country: None (occurrence: None)
  Receive Date: 20070124
  Receipt Date: 20060323
  Transmission Date: 20070707
  Serious: No
  Sender: FDA-Public Use
  Company Number: US-GLAXOSMITHKLINE-A0598819A

PATIENT
  Age: 52 Year
  Sex: Male

DRUGS (4)
  1. PAXIL CR [Suspect]
     Dosage: 25MG PER DAY
     Route: 048
     Dates: start: 20050913
  2. TENORMIN [Concomitant]
  3. PROPECIA [Concomitant]
  4. PAXIL [Concomitant]
     Dosage: 30MG PER DAY
     Route: 048

REACTIONS (1)
  - DRUG INEFFECTIVE [None]
